FAERS Safety Report 12190351 (Version 3)
Quarter: 2021Q4

REPORT INFORMATION
  Report Type: Spontaneous
  Country: US (occurrence: US)
  Receive Date: 20160318
  Receipt Date: 20211221
  Transmission Date: 20220303
  Serious: Yes (Other)
  Sender: FDA-Public Use
  Company Number: US-CIPLA LTD.-2016US02527

PATIENT

DRUGS (4)
  1. DARUNAVIR [Suspect]
     Active Substance: DARUNAVIR
     Dosage: UNK
     Route: 064
  2. NORVIR [Suspect]
     Active Substance: RITONAVIR
     Dosage: UNK
     Route: 064
  3. TRUVADA [Suspect]
     Active Substance: EMTRICITABINE\TENOFOVIR DISOPROXIL FUMARATE
     Dosage: UNK
     Route: 064
  4. RALTEGRAVIR [Suspect]
     Active Substance: RALTEGRAVIR
     Dosage: UNK
     Route: 064

REACTIONS (3)
  - Pseudohypoaldosteronism [Unknown]
  - Premature baby [Unknown]
  - Foetal exposure during pregnancy [Unknown]
